FAERS Safety Report 7811067-2 (Version None)
Quarter: 2011Q4

REPORT INFORMATION
  Report Type: 
  Country: None (occurrence: None)
  Receive Date: 20111013
  Receipt Date: 20110929
  Transmission Date: 20120403
  Serious: Yes (Hospitalization)
  Sender: FDA-Public Use
  Company Number: NL-CELGENEUS-114-20785-11080493

PATIENT
  Sex: Male
  Weight: 75 kg

DRUGS (6)
  1. CARBASALAATCALCIUM [Concomitant]
     Route: 048
     Dates: start: 20110530
  2. THALIDOMIDE [Suspect]
     Indication: MULTIPLE MYELOMA
     Dosage: 200 MILLIGRAM
     Route: 048
     Dates: start: 20110531, end: 20110731
  3. MELPHALAN HYDROCHLORIDE [Suspect]
     Indication: MULTIPLE MYELOMA
     Dosage: 12 MILLIGRAM
     Route: 048
     Dates: start: 20110726, end: 20110729
  4. PREDNISONE [Suspect]
     Indication: MULTIPLE MYELOMA
     Dosage: 140 MILLIGRAM
     Route: 048
     Dates: start: 20110726, end: 20110729
  5. PANTOPRAZOLE SODIUM [Concomitant]
     Indication: PROPHYLAXIS
     Route: 048
     Dates: start: 20110530
  6. APD [Concomitant]
     Dosage: 30 MILLIGRAM
     Route: 041
     Dates: start: 20110530, end: 20110725

REACTIONS (1)
  - ABSCESS JAW [None]
